FAERS Safety Report 16818199 (Version 1)
Quarter: 2019Q3

REPORT INFORMATION
  Report Type: Spontaneous
  Country: US (occurrence: US)
  Receive Date: 20190917
  Receipt Date: 20190917
  Transmission Date: 20191005
  Serious: No
  Sender: FDA-Public Use
  Company Number: US-PERRIGO-19US005407

PATIENT
  Age: 64 Year
  Sex: Male
  Weight: 108.84 kg

DRUGS (1)
  1. FLUOCINOLONE ACETONIDE. [Suspect]
     Active Substance: FLUOCINOLONE ACETONIDE
     Indication: PRURITUS
     Dosage: 5 DROPS, SINGLE
     Route: 001
     Dates: start: 20180903, end: 20180903

REACTIONS (3)
  - Off label use [Recovered/Resolved]
  - Incorrect route of product administration [Recovered/Resolved]
  - Deafness unilateral [Not Recovered/Not Resolved]

NARRATIVE: CASE EVENT DATE: 20180903
